FAERS Safety Report 6030240-X (Version None)
Quarter: 2009Q1

REPORT INFORMATION
  Report Type: 
  Country: None (occurrence: None)
  Receive Date: 20090105
  Receipt Date: 20090105
  Transmission Date: 20090719
  Serious: No
  Sender: FDA-Public Use
  Company Number: None

PATIENT
  Age: 60 Year
  Sex: Female
  Weight: 63.5036 kg

DRUGS (1)
  1. BONIVA [Suspect]
     Indication: OSTEOPOROSIS PROPHYLAXIS
     Dosage: 2/19/2008 MONTHLY PO ONLY ONE DOSE
     Route: 048
     Dates: start: 20080219, end: 20080219

REACTIONS (6)
  - DIARRHOEA [None]
  - FALL [None]
  - SYNCOPE [None]
  - TOOTH INJURY [None]
  - TOOTH LOSS [None]
  - VOMITING [None]
